FAERS Safety Report 8069683-1 (Version None)
Quarter: 2012Q1

REPORT INFORMATION
  Report Type: 
  Country: None (occurrence: None)
  Receive Date: 20120119
  Receipt Date: 20120111
  Transmission Date: 20120608
  Serious: Yes (Other)
  Sender: FDA-Public Use
  Company Number: OSCN-PR-1201S-0004

PATIENT
  Sex: Male

DRUGS (1)
  1. OMNISCAN [Suspect]
     Indication: PRODUCT USED FOR UNKNOWN INDICATION
     Dosage: SINGLE DOSE
     Dates: start: 20040625, end: 20040625

REACTIONS (2)
  - RENAL FAILURE [None]
  - NEPHROGENIC SYSTEMIC FIBROSIS [None]
